FAERS Safety Report 17579583 (Version 3)
Quarter: 2020Q2

REPORT INFORMATION
  Report Type: Spontaneous
  Country: IT (occurrence: IT)
  Receive Date: 20200325
  Receipt Date: 20200415
  Transmission Date: 20200713
  Serious: Yes (Hospitalization, Other)
  Sender: FDA-Public Use
  Company Number: IT-ACCORD-176794

PATIENT
  Age: 36 Year
  Sex: Male

DRUGS (1)
  1. CLOZAPINE. [Suspect]
     Active Substance: CLOZAPINE
     Indication: SCHIZOPHRENIA
     Dosage: GRADUALLY SWITCHED TO CLOZAPINE TREATMENT, 400 MG/D
     Route: 048

REACTIONS (1)
  - Aplasia pure red cell [Recovered/Resolved]
